FAERS Safety Report 5964363-8 (Version None)
Quarter: 2008Q4

REPORT INFORMATION
  Report Type: 
  Country: None (occurrence: None)
  Receive Date: 20081124
  Receipt Date: 20081110
  Transmission Date: 20090506
  Serious: Yes (Other)
  Sender: FDA-Public Use
  Company Number: BE-GENENTECH-271322

PATIENT
  Sex: Female
  Weight: 34 kg

DRUGS (21)
  1. PULMOZYME [Suspect]
     Indication: DRUG USE FOR UNKNOWN INDICATION
  2. XOLAIR [Suspect]
     Indication: BRONCHOPULMONARY ASPERGILLOSIS ALLERGIC
     Dosage: 300 MG, UNK
     Route: 058
     Dates: start: 20080825, end: 20081006
  3. MEDROL [Concomitant]
     Indication: DRUG USE FOR UNKNOWN INDICATION
     Dosage: 10 MG, 1/WEEK
  4. SODIUM CHLORIDE [Concomitant]
     Indication: DRUG USE FOR UNKNOWN INDICATION
     Dosage: 6 %, UNK
  5. AMUKIN [Concomitant]
     Indication: DRUG USE FOR UNKNOWN INDICATION
  6. INTERFERON GAMMA-1B [Concomitant]
     Indication: DRUG USE FOR UNKNOWN INDICATION
  7. LANTUS [Concomitant]
     Indication: DRUG USE FOR UNKNOWN INDICATION
  8. OMEPRAZOLE [Concomitant]
     Indication: DRUG USE FOR UNKNOWN INDICATION
  9. ETHAMBUTOL HYDROCHLORIDE [Concomitant]
     Indication: DRUG USE FOR UNKNOWN INDICATION
  10. AVELOX [Concomitant]
     Indication: DRUG USE FOR UNKNOWN INDICATION
  11. ASCORBIC ACID [Concomitant]
     Indication: DRUG USE FOR UNKNOWN INDICATION
  12. ERGOCALCIFEROL [Concomitant]
     Indication: DRUG USE FOR UNKNOWN INDICATION
  13. FOLIC ACID [Concomitant]
     Indication: DRUG USE FOR UNKNOWN INDICATION
  14. NICOTINAMIDE [Concomitant]
     Indication: DRUG USE FOR UNKNOWN INDICATION
  15. PANTHENOL [Concomitant]
     Indication: DRUG USE FOR UNKNOWN INDICATION
  16. RETINOL [Concomitant]
     Indication: DRUG USE FOR UNKNOWN INDICATION
  17. RIBOFLAVIN TAB [Concomitant]
     Indication: DRUG USE FOR UNKNOWN INDICATION
  18. THIAMINE HCL [Concomitant]
     Indication: DRUG USE FOR UNKNOWN INDICATION
  19. AZITHROMYCIN [Concomitant]
     Indication: DRUG USE FOR UNKNOWN INDICATION
     Dosage: 250 MG, UNK
  20. VORICONAZOLE [Concomitant]
     Indication: DRUG USE FOR UNKNOWN INDICATION
     Dosage: 250 MG, UNK
  21. PREDNISOLONE [Concomitant]
     Indication: DRUG USE FOR UNKNOWN INDICATION
     Dosage: 10 MG, UNK

REACTIONS (3)
  - EOSINOPHIL COUNT DECREASED [None]
  - MALAISE [None]
  - RASH [None]
